FAERS Safety Report 8780453 (Version 1)
Quarter: 2012Q4

REPORT INFORMATION
  Report Type: Spontaneous
  Country: GB (occurrence: None)
  Receive Date: 20120830
  Receipt Date: 20120830
  Transmission Date: 20130627
  Serious: Yes (Hospitalization, Disabling)
  Sender: FDA-Public Use
  Company Number: FK201202482

PATIENT
  Age: 47 Year

DRUGS (8)
  1. GEMCITABINE (MANUFACTURER UNKNOWN) (GEMCITABINE) (GEMCITABINE) [Suspect]
     Route: 042
     Dates: start: 20120525, end: 20120621
  2. MYCOBACTERIUM OBUENSE [Suspect]
     Route: 023
     Dates: start: 20120525, end: 20120621
  3. AUGMENTIN (AUGMENTIN /00756801/) [Concomitant]
  4. BISACODYL (BISACODYL) [Concomitant]
  5. METOCLOPRAMIDE (METOCLOPRAMIDE) [Concomitant]
  6. MST CONTINUS (MORPHINE SULFATE) [Concomitant]
  7. OMEPRAZOLE (OMEPRAZOLE) [Concomitant]
  8. ORAMORPH (MORPHINE SULFATE) [Concomitant]

REACTIONS (3)
  - Cerebellar infarction [None]
  - Urinary tract infection [None]
  - Cerebral infarction [None]
